FAERS Safety Report 7463797-2 (Version None)
Quarter: 2011Q2

REPORT INFORMATION
  Report Type: 
  Country: None (occurrence: None)
  Receive Date: 20110506
  Receipt Date: 20110503
  Transmission Date: 20111010
  Serious: Yes (Death, Other)
  Sender: FDA-Public Use
  Company Number: PHHO2010DE19730

PATIENT
  Sex: Female
  Weight: 63 kg

DRUGS (3)
  1. GLEEVEC [Suspect]
     Indication: CHRONIC MYELOID LEUKAEMIA
     Dosage: UNK
     Dates: start: 20021201, end: 20051201
  2. SPRYCEL [Suspect]
     Dosage: UNK
     Dates: start: 20060101
  3. HYDROXYUREA [Concomitant]

REACTIONS (26)
  - DISORIENTATION [None]
  - SLOW RESPONSE TO STIMULI [None]
  - CHRONIC MYELOMONOCYTIC LEUKAEMIA [None]
  - MYELODYSPLASTIC SYNDROME [None]
  - DYSARTHRIA [None]
  - BLAST CELL CRISIS [None]
  - DYSPNOEA [None]
  - ALTERED STATE OF CONSCIOUSNESS [None]
  - ORAL CANDIDIASIS [None]
  - SOMNOLENCE [None]
  - CONFUSIONAL STATE [None]
  - ASTHENIA [None]
  - APHASIA [None]
  - FAECAL INCONTINENCE [None]
  - URINARY INCONTINENCE [None]
  - GENERAL PHYSICAL HEALTH DETERIORATION [None]
  - ATRIAL FIBRILLATION [None]
  - PLEURAL EFFUSION [None]
  - PETECHIAE [None]
  - ARTERIOSCLEROSIS [None]
  - ARTERIAL OCCLUSIVE DISEASE [None]
  - NEOPLASM MALIGNANT [None]
  - DYSPHAGIA [None]
  - PSYCHOMOTOR RETARDATION [None]
  - THROMBOCYTOPENIA [None]
  - MOTOR DYSFUNCTION [None]
